FAERS Safety Report 21249207 (Version 1)
Quarter: 2022Q3

REPORT INFORMATION
  Report Type: Report from Study
  Country: US (occurrence: US)
  Receive Date: 20220824
  Receipt Date: 20220824
  Transmission Date: 20221026
  Serious: Yes (Other)
  Sender: FDA-Public Use
  Company Number: US-BAYER-2022A114380

PATIENT
  Age: 62 Year
  Sex: Male

DRUGS (2)
  1. STIVARGA [Suspect]
     Active Substance: REGORAFENIB
     Indication: Hepatocellular carcinoma
     Dosage: 80 MG, QD THEN TAKE 3 TABLETS FOR WEEK 2 AND 4 TABLSTE FOR WEEK 3 AND THEN REST
     Route: 048
     Dates: start: 20220729
  2. STIVARGA [Suspect]
     Active Substance: REGORAFENIB
     Indication: Hepatocellular carcinoma
     Dosage: DOSE REDUCED

REACTIONS (3)
  - Peripheral nerve injury [Unknown]
  - Gait disturbance [Unknown]
  - Off label use [None]

NARRATIVE: CASE EVENT DATE: 20220729
